FAERS Safety Report 5771650-5 (Version None)
Quarter: 2008Q2

REPORT INFORMATION
  Report Type: 
  Country: None (occurrence: None)
  Receive Date: 20080611
  Receipt Date: 20080529
  Transmission Date: 20081010
  Serious: Yes (Death, Life-Threatening, Other)
  Sender: FDA-Public Use
  Company Number: CH200805003782

PATIENT
  Age: 41 Year
  Sex: Female

DRUGS (22)
  1. CYMBALTA [Suspect]
     Indication: DEPRESSION
     Dosage: SEE IMAGE
     Route: 048
     Dates: start: 20071219, end: 20080101
  2. CYMBALTA [Suspect]
     Indication: PSYCHOTIC DISORDER
     Dosage: SEE IMAGE
     Route: 048
     Dates: start: 20071219, end: 20080101
  3. CYMBALTA [Suspect]
     Indication: DEPRESSION
     Dosage: SEE IMAGE
     Route: 048
     Dates: start: 20080102, end: 20080103
  4. CYMBALTA [Suspect]
     Indication: PSYCHOTIC DISORDER
     Dosage: SEE IMAGE
     Route: 048
     Dates: start: 20080102, end: 20080103
  5. CYMBALTA [Suspect]
     Indication: DEPRESSION
     Dosage: SEE IMAGE
     Route: 048
     Dates: start: 20080104, end: 20080107
  6. CYMBALTA [Suspect]
     Indication: PSYCHOTIC DISORDER
     Dosage: SEE IMAGE
     Route: 048
     Dates: start: 20080104, end: 20080107
  7. CYMBALTA [Suspect]
     Indication: DEPRESSION
     Dosage: SEE IMAGE
     Route: 048
     Dates: start: 20080108, end: 20080123
  8. CYMBALTA [Suspect]
     Indication: PSYCHOTIC DISORDER
     Dosage: SEE IMAGE
     Route: 048
     Dates: start: 20080108, end: 20080123
  9. CYMBALTA [Suspect]
     Indication: DEPRESSION
     Dosage: SEE IMAGE
     Route: 048
     Dates: start: 20080124, end: 20080129
  10. CYMBALTA [Suspect]
     Indication: PSYCHOTIC DISORDER
     Dosage: SEE IMAGE
     Route: 048
     Dates: start: 20080124, end: 20080129
  11. CYMBALTA [Suspect]
     Indication: DEPRESSION
     Dosage: SEE IMAGE
     Route: 048
     Dates: start: 20080130
  12. CYMBALTA [Suspect]
     Indication: PSYCHOTIC DISORDER
     Dosage: SEE IMAGE
     Route: 048
     Dates: start: 20080130
  13. ZYPREXA [Suspect]
     Indication: PSYCHOTIC DISORDER
     Dosage: 15 MG, DAILY (1/D), ORAL
     Route: 048
     Dates: start: 20080108
  14. REMERON [Concomitant]
  15. WELLBATRIN (BUPROPION HYDROCHLORIDE) [Concomitant]
  16. LORAZEPAM [Concomitant]
  17. LIORESAL [Concomitant]
  18. IBUPROFEN [Concomitant]
  19. NEURONTIN [Concomitant]
  20. PANTOPRAZOLE SODIUM [Concomitant]
  21. OXYCONTIN [Concomitant]
  22. OXYCODONE HCL [Concomitant]

REACTIONS (4)
  - AGITATION [None]
  - COMPLETED SUICIDE [None]
  - FEELINGS OF WORTHLESSNESS [None]
  - PAIN [None]
